FAERS Safety Report 22173779 (Version 1)
Quarter: 2023Q2

REPORT INFORMATION
  Report Type: Spontaneous
  Country: CN (occurrence: CN)
  Receive Date: 20230404
  Receipt Date: 20230404
  Transmission Date: 20230722
  Serious: Yes (Other)
  Sender: FDA-Public Use
  Company Number: CN-SA-SAC20230403001344

PATIENT
  Age: 69 Year
  Sex: Male
  Weight: 70 kg

DRUGS (4)
  1. OXALIPLATIN [Suspect]
     Active Substance: OXALIPLATIN
     Indication: Gastric cancer
     Dosage: 250 MG, QD
     Route: 041
     Dates: start: 20221022, end: 20221022
  2. SINTILIMAB [Concomitant]
     Active Substance: SINTILIMAB
     Indication: Gastric cancer
     Dosage: 200 MG, QD
     Route: 041
     Dates: start: 20221022, end: 20221022
  3. CAPECITABINE [Concomitant]
     Active Substance: CAPECITABINE
     Indication: Gastric cancer
     Dosage: 2G, QD
     Route: 048
     Dates: start: 20221022, end: 20221022
  4. CAPECITABINE [Concomitant]
     Active Substance: CAPECITABINE
     Dosage: 1.5 G, QD
     Route: 048
     Dates: start: 20221022, end: 20221104

REACTIONS (3)
  - Peripheral nerve injury [Recovering/Resolving]
  - Neurotoxicity [Recovering/Resolving]
  - Taste disorder [Recovering/Resolving]

NARRATIVE: CASE EVENT DATE: 20230304
